FAERS Safety Report 5706319-6 (Version None)
Quarter: 2008Q2

REPORT INFORMATION
  Report Type: 
  Country: None (occurrence: None)
  Receive Date: 20080411
  Receipt Date: 20080328
  Transmission Date: 20081010
  Serious: Yes (Other)
  Sender: FDA-Public Use
  Company Number: 002#8#2008-00169

PATIENT
  Age: 56 Year
  Sex: Male

DRUGS (2)
  1. POLYETHYLENE GLYCOL [Suspect]
     Indication: COLONOSCOPY
     Dosage: ORAL
     Route: 048
  2. BISACODYL [Suspect]
     Indication: COLONOSCOPY
     Dosage: ORAL
     Route: 048

REACTIONS (1)
  - COLITIS ISCHAEMIC [None]
